FAERS Safety Report 4867898-4 (Version None)
Quarter: 2005Q4

REPORT INFORMATION
  Report Type: 
  Country: None (occurrence: None)
  Receive Date: 20051227
  Receipt Date: 20051208
  Transmission Date: 20060501
  Serious: Yes (Hospitalization, Other)
  Sender: FDA-Public Use
  Company Number: GB-JNJFOC-20051202712

PATIENT
  Age: 21 Year
  Sex: Male

DRUGS (1)
  1. RISPERDAL [Suspect]
     Dosage: 6 MG, 1 IN 1 DAY, ORAL
     Route: 048

REACTIONS (5)
  - DYSPNOEA [None]
  - NUCHAL RIGIDITY [None]
  - OCULOGYRATION [None]
  - OVERDOSE [None]
  - THROAT TIGHTNESS [None]
